FAERS Safety Report 8050845-4 (Version None)
Quarter: 2012Q1

REPORT INFORMATION
  Report Type: 
  Country: None (occurrence: None)
  Receive Date: 20120117
  Receipt Date: 20120103
  Transmission Date: 20120608
  Serious: Yes (Hospitalization, Other)
  Sender: FDA-Public Use
  Company Number: PHEH2011US012480

PATIENT
  Age: 80 Year
  Sex: Female

DRUGS (2)
  1. DIOVAN [Concomitant]
  2. FEMARA [Suspect]

REACTIONS (6)
  - BLOOD PRESSURE SYSTOLIC INCREASED [None]
  - FALL [None]
  - OSTEOPOROSIS [None]
  - HEAD INJURY [None]
  - BLOOD CHOLESTEROL ABNORMAL [None]
  - HEPATIC ENZYME INCREASED [None]
